FAERS Safety Report 4626550-0 (Version None)
Quarter: 2005Q1

REPORT INFORMATION
  Report Type: 
  Country: None (occurrence: None)
  Receive Date: 20050330
  Receipt Date: 20050311
  Transmission Date: 20050727
  Serious: Yes (Other)
  Sender: FDA-Public Use
  Company Number: USA041286286

PATIENT
  Age: 34 Year
  Sex: Female
  Weight: 89 kg

DRUGS (2)
  1. CYMBALTA [Suspect]
     Indication: DEPRESSION
     Dosage: 90 MG DAY
     Dates: start: 20040907, end: 20050228
  2. MOTRIN [Concomitant]

REACTIONS (1)
  - HYPERTENSION [None]
